FAERS Safety Report 5023244-7 (Version None)
Quarter: 2006Q2

REPORT INFORMATION
  Report Type: 
  Country: None (occurrence: None)
  Receive Date: 20060605
  Receipt Date: 20060518
  Transmission Date: 20061013
  Serious: Yes (Hospitalization)
  Sender: FDA-Public Use
  Company Number: DE-2006-008210

PATIENT
  Age: 61 Year
  Sex: Male

DRUGS (3)
  1. BETASERON [Suspect]
     Indication: MULTIPLE SCLEROSIS
     Dosage: 1 AMP, EVERY 2D, SUBCUTANEOUS;  SUBCUTANEOUS
     Route: 058
     Dates: start: 20011001, end: 20051227
  2. CORTISONE ACETATE [Concomitant]
  3. LIORESAL [Concomitant]

REACTIONS (4)
  - ABDOMINAL ABSCESS [None]
  - INJECTION SITE ERYTHEMA [None]
  - INJECTION SITE INDURATION [None]
  - INJECTION SITE PAIN [None]
